FAERS Safety Report 6471141-2 (Version None)
Quarter: 2009Q4

REPORT INFORMATION
  Report Type: 
  Country: None (occurrence: None)
  Receive Date: 20091119
  Receipt Date: 20090810
  Transmission Date: 20100525
  Serious: No
  Sender: FDA-Public Use
  Company Number: WAES 0908USA01578

PATIENT
  Age: 58 Year
  Sex: Female

DRUGS (2)
  1. JANUVIA [Suspect]
     Dosage: 50 MG/BID/PO
     Route: 048
     Dates: start: 20090701
  2. LANTUS [Concomitant]

REACTIONS (2)
  - BLOOD GLUCOSE INCREASED [None]
  - INAPPROPRIATE SCHEDULE OF DRUG ADMINISTRATION [None]
